FAERS Safety Report 8325239-4 (Version None)
Quarter: 2012Q2

REPORT INFORMATION
  Report Type: 
  Country: None (occurrence: None)
  Receive Date: 20120427
  Receipt Date: 20120416
  Transmission Date: 20120825
  Serious: Yes (Hospitalization, Other)
  Sender: FDA-Public Use
  Company Number: FR-1191674

PATIENT
  Sex: Female

DRUGS (3)
  1. TRAVATAN [Suspect]
     Dosage: (OPHTHALMIC)
     Route: 047
     Dates: start: 20120110, end: 20120220
  2. ACETAMINOPHEN [Concomitant]
  3. AZOPT [Suspect]
     Dosage: (OPHTHALMIC)
     Route: 047

REACTIONS (6)
  - DYSPNOEA [None]
  - ACTIVITIES OF DAILY LIVING IMPAIRED [None]
  - RESPIRATORY DISTRESS [None]
  - MUSCULOSKELETAL PAIN [None]
  - DIAPHRAGMATIC PARALYSIS [None]
  - CONSTIPATION [None]
